FAERS Safety Report 9051516 (Version 1)
Quarter: 2013Q1

REPORT INFORMATION
  Report Type: Report from Study
  Country: US (occurrence: US)
  Receive Date: 20130207
  Receipt Date: 20130207
  Transmission Date: 20140127
  Serious: Yes (Other)
  Sender: FDA-Public Use
  Company Number: US-ABBOTT-13P-163-1041983-00

PATIENT
  Age: 59 Year
  Sex: Female

DRUGS (9)
  1. HUMIRA [Suspect]
     Indication: RHEUMATOID ARTHRITIS
     Dates: start: 2008
  2. VICODIN [Concomitant]
     Indication: PAIN
  3. ETODOLAC [Concomitant]
     Indication: PRODUCT USED FOR UNKNOWN INDICATION
  4. FOLIC ACID [Concomitant]
     Indication: PRODUCT USED FOR UNKNOWN INDICATION
  5. VITAMIN D [Concomitant]
     Indication: RHEUMATOID ARTHRITIS
  6. ZOLOFT [Concomitant]
     Indication: DEPRESSION
  7. HCTZ [Concomitant]
     Indication: HYPERTENSION
     Dosage: 12.5 MG DAILY
  8. HCTZ [Concomitant]
     Dosage: 25 MG DAILY
  9. OMEPRAZOLE [Concomitant]
     Indication: GASTROOESOPHAGEAL REFLUX DISEASE

REACTIONS (5)
  - Pneumothorax spontaneous [Not Recovered/Not Resolved]
  - Carpal tunnel syndrome [Unknown]
  - Hypertension [Unknown]
  - Gastrooesophageal reflux disease [Unknown]
  - Herpes zoster [Unknown]
